FAERS Safety Report 21490252 (Version 1)
Quarter: 2022Q4

REPORT INFORMATION
  Report Type: Spontaneous
  Country: PT (occurrence: PT)
  Receive Date: 20221021
  Receipt Date: 20221021
  Transmission Date: 20230113
  Serious: Yes (Death, Hospitalization)
  Sender: FDA-Public Use
  Company Number: PT-STRIDES ARCOLAB LIMITED-2022SP013873

PATIENT
  Age: 64 Year
  Sex: Female

DRUGS (1)
  1. COLCHICINE [Suspect]
     Active Substance: COLCHICINE
     Indication: Behcet^s syndrome
     Dosage: 1 MILLIGRAM PER DAY
     Route: 065

REACTIONS (4)
  - Myocardial ischaemia [Fatal]
  - Ecchymosis [Fatal]
  - Toxicity to various agents [Fatal]
  - Off label use [Unknown]
